FAERS Safety Report 7360228-8 (Version None)
Quarter: 2011Q1

REPORT INFORMATION
  Report Type: 
  Country: None (occurrence: None)
  Receive Date: 20110307
  Receipt Date: 20110225
  Transmission Date: 20110831
  Serious: Yes (Disabling)
  Sender: FDA-Public Use
  Company Number: OSCN-NO-1005S-0132

PATIENT
  Age: 41 Year
  Sex: Female

DRUGS (34)
  1. MAGNEVIST [Suspect]
     Indication: PRODUCT USED FOR UNKNOWN INDICATION
     Dosage: , SINGLE DOSE, I.V.
     Route: 042
     Dates: start: 20071001, end: 20071001
  2. CINACALCET (MIMPARA) [Concomitant]
  3. VANCOMYCIN (VANCOMYCIN ^HOSPIRA^) [Concomitant]
  4. CODEINE [Concomitant]
  5. KETOBEMIDONE (KETOGAN) [Concomitant]
  6. VITAMIN C (NYCOPLUS C) [Concomitant]
  7. ATORVASTATIN CALCIUM [Concomitant]
  8. PLAVIX [Concomitant]
  9. STOLPIDEM (STILNOCT) [Concomitant]
  10. CIPROFLOXACIN [Concomitant]
  11. GLYCERYL TRINITRATE (NITROLINGUAL) [Concomitant]
  12. CODEINE, COMBINATIONS EXCL. PSYCHOLEPTICS (FORTAMOL) [Concomitant]
  13. ATORVASTATIN CALCIUM [Concomitant]
  14. OMNISCAN [Suspect]
     Indication: TRANSPLANT EVALUATION
     Dosage: 20 ML, SINGLE DOSE, I.V.
     Route: 042
     Dates: start: 20060313, end: 20060313
  15. GADAVIST [Suspect]
     Indication: ARTERIOVENOUS FISTULA
     Dosage: NR, SINGLE DOSE, I.V.
     Route: 042
     Dates: start: 20090901, end: 20090901
  16. PARICALCITOL (ZEMPLAR) [Concomitant]
  17. PARACETAMOL (PINEX) [Concomitant]
  18. FOSRENOL [Concomitant]
  19. FOLIC ACID [Concomitant]
  20. TRANDATE [Concomitant]
  21. METOCLOPRAMIDE (EMPERAL) [Concomitant]
  22. MELATONIN (CIRCADIN) [Concomitant]
  23. ARANESP [Concomitant]
  24. RAMIPRIL [Concomitant]
  25. VANCOMYCIN (VANCOMYCIN ^ALPHARMA^) [Concomitant]
  26. INNOHEP [Concomitant]
  27. TRAMADOL (TRADOLAN) [Concomitant]
  28. LANTHANUM CARBONATE [Concomitant]
  29. RENAGEL [Concomitant]
  30. METOCLOPRAMIDE HYDROCHLORIDE [Concomitant]
  31. SACCHARATED IRON OXIDE (VENOFER) [Concomitant]
  32. METOPROLOL (SELO-ZOK) [Concomitant]
  33. WARFARIN (MAREVAN) [Concomitant]
  34. VITAMIN B COMPLEX, PLAIN (B-COMBIN ST?RK) [Concomitant]

REACTIONS (15)
  - GAIT DISTURBANCE [None]
  - MUSCLE CONTRACTURE [None]
  - ARTHRALGIA [None]
  - BALANCE DISORDER [None]
  - OEDEMA PERIPHERAL [None]
  - SKIN DISCOLOURATION [None]
  - PAIN [None]
  - SWELLING [None]
  - TENDON DISORDER [None]
  - SOFT TISSUE DISORDER [None]
  - CONTRAST MEDIA REACTION [None]
  - SKIN TIGHTNESS [None]
  - NEPHROGENIC SYSTEMIC FIBROSIS [None]
  - MUSCLE SWELLING [None]
  - SPIDER VEIN [None]
